FAERS Safety Report 11435952 (Version 2)
Quarter: 2015Q3

REPORT INFORMATION
  Report Type: Spontaneous
  Country: DE (occurrence: DE)
  Receive Date: 20150831
  Receipt Date: 20150909
  Transmission Date: 20151125
  Serious: Yes (Hospitalization)
  Sender: FDA-Public Use
  Company Number: DE-ASTRAZENECA-2015SE82590

PATIENT
  Sex: Female

DRUGS (2)
  1. BRILIQUE [Suspect]
     Active Substance: TICAGRELOR
     Indication: ANEURYSM REPAIR
     Route: 048
     Dates: start: 20150311
  2. ASPIRIN. [Concomitant]
     Active Substance: ASPIRIN
     Indication: ANEURYSM REPAIR
     Route: 048
     Dates: start: 20150311

REACTIONS (3)
  - Off label use [Unknown]
  - Diarrhoea [Not Recovered/Not Resolved]
  - Diarrhoea haemorrhagic [Unknown]
